FAERS Safety Report 12596756 (Version 1)
Quarter: 2016Q3

REPORT INFORMATION
  Report Type: Spontaneous
  Country: US (occurrence: US)
  Receive Date: 20160726
  Receipt Date: 20160726
  Transmission Date: 20161109
  Serious: No
  Sender: FDA-Public Use
  Company Number: US-009507513-1607USA008284

PATIENT
  Sex: Female

DRUGS (1)
  1. TEMODAR [Suspect]
     Active Substance: TEMOZOLOMIDE
     Indication: GLIOBLASTOMA
     Dosage: 365 MG, ON DAYS 1,3 AND 5 OF 28 DAY CYCLE
     Route: 048
     Dates: start: 201512, end: 20160714

REACTIONS (2)
  - Drug effect incomplete [Unknown]
  - Product use issue [Unknown]
